FAERS Safety Report 8473752-1 (Version None)
Quarter: 2012Q2

REPORT INFORMATION
  Report Type: 
  Country: None (occurrence: None)
  Receive Date: 20120628
  Receipt Date: 20111104
  Transmission Date: 20120825
  Serious: Yes (Death)
  Sender: FDA-Public Use
  Company Number: US-MYLANLABS-2011S1021941

PATIENT
  Age: 74 Year
  Sex: Female

DRUGS (6)
  1. CLOZAPINE [Suspect]
     Route: 048
     Dates: end: 20110101
  2. CLOZAPINE [Suspect]
     Route: 048
     Dates: end: 20110101
  3. LORAZEPAM [Concomitant]
  4. ALBUTEROL [Concomitant]
  5. CLOZAPINE [Suspect]
     Route: 048
     Dates: end: 20110101
  6. IPRATROPIUM BROMIDE [Concomitant]

REACTIONS (2)
  - BREAST CANCER [None]
  - CHRONIC OBSTRUCTIVE PULMONARY DISEASE [None]
